FAERS Safety Report 8492931-0 (Version None)
Quarter: 2012Q3

REPORT INFORMATION
  Report Type: 
  Country: None (occurrence: None)
  Receive Date: 20120706
  Receipt Date: 20120628
  Transmission Date: 20120928
  Serious: Yes (Life-Threatening, Other)
  Sender: FDA-Public Use
  Company Number: US-GLAXOSMITHKLINE-A0982708A

PATIENT
  Age: 83 Year
  Sex: Female

DRUGS (15)
  1. FUROSEMIDE [Concomitant]
  2. FENTANYL-100 [Suspect]
  3. ASPIRIN [Concomitant]
  4. HUMALOG [Concomitant]
  5. LORAZEPAM [Concomitant]
  6. MULTI-VITAMINS [Concomitant]
  7. LOPERAMIDE [Concomitant]
  8. MILK OF MAGNESIA TAB [Concomitant]
  9. OMEPRAZOLE [Concomitant]
  10. ACETAMINOPHEN [Concomitant]
  11. CARVEDILOL [Concomitant]
  12. LANTUS [Concomitant]
  13. ZOFRAN [Suspect]
     Indication: NAUSEA
     Dosage: 4MG UNKNOWN
     Route: 042
     Dates: start: 20120623, end: 20120627
  14. BISACODYL [Concomitant]
  15. PERCOCET [Concomitant]

REACTIONS (2)
  - RESPIRATORY ARREST [None]
  - TACHYCARDIA [None]
